FAERS Safety Report 8574814-0 (Version None)
Quarter: 2012Q3

REPORT INFORMATION
  Report Type: 
  Country: None (occurrence: None)
  Receive Date: 20120807
  Receipt Date: 20120730
  Transmission Date: 20120928
  Serious: Yes (Death, Hospitalization, Other)
  Sender: FDA-Public Use
  Company Number: CO-009507513-1207COL010919

PATIENT

DRUGS (7)
  1. PEG-INTRON [Suspect]
     Indication: HEPATITIS VIRAL
     Dosage: UNK
     Dates: start: 20120509, end: 20120727
  2. OMEPRAZOLE [Concomitant]
  3. ISONIAZID [Concomitant]
  4. ACETAMINOPHEN [Concomitant]
  5. RIBAVIRIN [Concomitant]
  6. PROPRANOLOL [Concomitant]
  7. LEVOTHYROXINE SODIUM [Concomitant]

REACTIONS (6)
  - DIABETIC COMA [None]
  - ASTHENIA [None]
  - VOMITING [None]
  - BLOOD GLUCOSE INCREASED [None]
  - DIZZINESS [None]
  - DIABETES MELLITUS [None]
